FAERS Safety Report 23847248 (Version 1)
Quarter: 2024Q2

REPORT INFORMATION
  Report Type: Spontaneous
  Country: FR (occurrence: FR)
  Receive Date: 20240513
  Receipt Date: 20240513
  Transmission Date: 20240715
  Serious: Yes (Other)
  Sender: FDA-Public Use
  Company Number: None

PATIENT
  Age: 18 Year
  Sex: Male
  Weight: 75 kg

DRUGS (8)
  1. ACETAMINOPHEN [Suspect]
     Active Substance: ACETAMINOPHEN
     Indication: Analgesic intervention supportive therapy
     Dosage: TIME INTERVAL: TOTAL
     Route: 042
     Dates: start: 20240227, end: 20240227
  2. ACUPAN [Suspect]
     Active Substance: NEFOPAM HYDROCHLORIDE
     Indication: Analgesic intervention supportive therapy
     Dosage: TIME INTERVAL: TOTAL
     Route: 042
     Dates: start: 20240227, end: 20240227
  3. SUFENTANIL CITRATE [Suspect]
     Active Substance: SUFENTANIL CITRATE
     Indication: Induction of anaesthesia
     Dosage: TIME INTERVAL: TOTAL
     Route: 042
     Dates: start: 20240227, end: 20240227
  4. KETOPROFEN [Suspect]
     Active Substance: KETOPROFEN
     Indication: Analgesic intervention supportive therapy
     Dosage: TIME INTERVAL: TOTAL
     Route: 042
     Dates: start: 20240227, end: 20240227
  5. DEXAMETHASONE [Suspect]
     Active Substance: DEXAMETHASONE
     Indication: Adrenocortical steroid therapy
     Dosage: TIME INTERVAL: TOTAL
     Route: 042
     Dates: start: 20240227, end: 20240227
  6. CEFAZOLIN SODIUM [Suspect]
     Active Substance: CEFAZOLIN SODIUM
     Indication: Antibiotic prophylaxis
     Dosage: TIME INTERVAL: TOTAL
     Route: 042
     Dates: start: 20240227, end: 20240227
  7. PROPOFOL LIPURO [Suspect]
     Active Substance: PROPOFOL
     Indication: Induction of anaesthesia
     Dosage: TIME INTERVAL: TOTAL
     Route: 042
     Dates: start: 20240227, end: 20240227
  8. KETAMINE [Suspect]
     Active Substance: KETAMINE
     Indication: Induction of anaesthesia
     Dosage: TIME INTERVAL: TOTAL
     Route: 042
     Dates: start: 20240227, end: 20240227

REACTIONS (1)
  - Erythema [Recovered/Resolved]

NARRATIVE: CASE EVENT DATE: 20240327
